FAERS Safety Report 19376789 (Version 1)
Quarter: 2021Q2

REPORT INFORMATION
  Report Type: Report from Study
  Country: CN (occurrence: CN)
  Receive Date: 20210604
  Receipt Date: 20210604
  Transmission Date: 20210717
  Serious: Yes (Death)
  Sender: FDA-Public Use
  Company Number: CN-PFIZER INC-2021601287

PATIENT

DRUGS (2)
  1. CYTARABINE. [Suspect]
     Active Substance: CYTARABINE
     Indication: ACUTE MYELOID LEUKAEMIA
     Dosage: 20 MG/M2,LOW DOSE, CYCLIC (ONCE A DAY FROM DAY 1 TO DAY 10 OF ALL CYCLES)
     Route: 058
  2. PLACEBO [Suspect]
     Active Substance: UNSPECIFIED INGREDIENT
     Indication: ACUTE MYELOID LEUKAEMIA
     Dosage: UNK UNK, CYCLIC

REACTIONS (1)
  - Cardiac arrest [Fatal]
